FAERS Safety Report 5107889-1 (Version None)
Quarter: 2006Q3

REPORT INFORMATION
  Report Type: 
  Country: None (occurrence: None)
  Receive Date: 20060919
  Receipt Date: 20051110
  Transmission Date: 20061208
  Serious: Yes (Hospitalization)
  Sender: FDA-Public Use
  Company Number: US-BAYER-200512521BWH

PATIENT
  Age: 62 Year
  Sex: Female
  Weight: 42 kg

DRUGS (48)
  1. SORAFENIB [Suspect]
     Indication: METASTATIC RENAL CELL CARCINOMA
     Dosage: TOTAL DAILY DOSE: 800 MG  UNIT DOSE: 200 MG
     Route: 048
     Dates: start: 20051101, end: 20051108
  2. SORAFENIB [Suspect]
     Dosage: TOTAL DAILY DOSE: 400 MG  UNIT DOSE: 200 MG
     Route: 048
     Dates: start: 20051114, end: 20051119
  3. HYDROCODONE [Concomitant]
     Indication: ANALGESIC EFFECT
     Route: 048
     Dates: start: 20040901, end: 20051109
  4. ATIVAN [Concomitant]
     Indication: ANTIEMETIC SUPPORTIVE CARE
     Route: 042
     Dates: start: 20051121, end: 20051123
  5. ATIVAN [Concomitant]
     Route: 048
     Dates: start: 20040901, end: 20051109
  6. ATIVAN [Concomitant]
     Route: 042
     Dates: start: 20051119, end: 20051120
  7. COMPAZINE [Concomitant]
     Indication: VOMITING
     Route: 048
     Dates: end: 20051109
  8. METOPROLOL [Concomitant]
     Indication: HYPERTENSION
     Route: 048
     Dates: start: 20040101
  9. LASIX [Concomitant]
     Indication: OEDEMA
     Dosage: TOTAL DAILY DOSE: 120 MG
     Route: 042
     Dates: start: 20051118, end: 20051121
  10. LASIX [Concomitant]
     Dosage: TOTAL DAILY DOSE: 40 MG
     Route: 048
     Dates: start: 20051122
  11. LASIX [Concomitant]
     Route: 048
     Dates: start: 19920101
  12. GLYBURIDE [Concomitant]
     Indication: DIABETES MELLITUS
     Route: 048
     Dates: start: 20050830, end: 20051118
  13. SYNTHROID [Concomitant]
     Indication: HYPOTHYROIDISM
     Route: 048
     Dates: start: 20040901, end: 20051118
  14. SYNTHROID [Concomitant]
     Route: 048
     Dates: start: 20051119, end: 20051119
  15. SYNTHROID [Concomitant]
     Route: 048
     Dates: start: 20051123
  16. SYNTHROID [Concomitant]
     Route: 048
     Dates: start: 20051120, end: 20051123
  17. PREVACID [Concomitant]
     Indication: GASTROINTESTINAL ULCER
     Route: 048
     Dates: start: 20050718, end: 20051118
  18. BENADRYL [Concomitant]
     Indication: HYPERSENSITIVITY
     Route: 048
     Dates: start: 20051108
  19. FENTANYL [Concomitant]
     Indication: ANALGESIC INTERVENTION SUPPORTIVE THERAPY
     Dates: start: 20051114, end: 20051118
  20. FENTANYL [Concomitant]
     Dates: start: 20051123
  21. FENTANYL [Concomitant]
     Dates: start: 20051119, end: 20051123
  22. LACTULOSE [Concomitant]
     Indication: CONSTIPATION
     Route: 048
     Dates: start: 20051121, end: 20051121
  23. LACTULOSE [Concomitant]
     Route: 048
     Dates: start: 20051114, end: 20051118
  24. MEGACE [Concomitant]
     Indication: ANOREXIA
     Route: 048
     Dates: start: 20051121, end: 20051121
  25. MEGACE [Concomitant]
     Route: 048
     Dates: start: 20051114, end: 20051118
  26. DEMECLOCYCLINE [Concomitant]
     Indication: INFECTION
     Route: 048
     Dates: start: 20051114, end: 20051118
  27. RESTORIL [Concomitant]
     Indication: INSOMNIA
     Route: 048
     Dates: start: 20051118
  28. LOVENOX [Concomitant]
     Indication: PULMONARY EMBOLISM
     Route: 058
     Dates: start: 20051118
  29. NOVOLIN R [Concomitant]
     Indication: DIABETES MELLITUS
     Dates: start: 20051118, end: 20051123
  30. DECADRON [Concomitant]
     Indication: HYPERSENSITIVITY
     Dosage: TOTAL DAILY DOSE: 24 MG
     Route: 042
     Dates: start: 20051118, end: 20051118
  31. LEVAQUIN [Concomitant]
     Indication: PNEUMONIA
     Route: 042
     Dates: start: 20051118
  32. ROCEPHIN [Concomitant]
     Indication: INFECTION
     Route: 042
     Dates: start: 20051118
  33. ROCEPHIN [Concomitant]
     Route: 042
     Dates: start: 20051119, end: 20051122
  34. ASTRAMORPH PF [Concomitant]
     Indication: ANALGESIC INTERVENTION SUPPORTIVE THERAPY
     Dates: start: 20051119, end: 20051119
  35. ASPIRIN [Concomitant]
     Indication: ANALGESIC INTERVENTION SUPPORTIVE THERAPY
     Route: 048
     Dates: start: 20051119
  36. ALBUTEROL SULFATE [Concomitant]
     Indication: BRONCHOSPASM
     Dates: start: 20051120
  37. ATROVENT [Concomitant]
     Indication: BRONCHOSPASM
     Dates: start: 20051120
  38. COLACE [Concomitant]
     Indication: CONSTIPATION
     Dosage: TOTAL DAILY DOSE: 200 MG
     Route: 048
     Dates: start: 20051121
  39. DULCOLAX [Concomitant]
     Indication: LAXATIVE SUPPORTIVE CARE
     Dosage: UNIT DOSE: 10 MG
     Dates: start: 20051121
  40. SODIUM PHOSPHATES [Concomitant]
     Indication: CONSTIPATION
     Dates: start: 20051121
  41. PREDNISONE [Concomitant]
     Route: 048
     Dates: start: 20051123, end: 20051123
  42. PREDNISONE [Concomitant]
     Route: 048
     Dates: start: 20051122
  43. SENOKOT [Concomitant]
     Indication: LAXATIVE SUPPORTIVE CARE
     Dosage: TOTAL DAILY DOSE: 68.8 MG  UNIT DOSE: 17.2 MG
     Route: 048
     Dates: start: 20051122
  44. PHENERGAN [Concomitant]
     Indication: NAUSEA
     Route: 042
     Dates: start: 20051123
  45. POTASSIUM CHLORIDE [Concomitant]
     Indication: HYPOKALAEMIA
     Route: 042
     Dates: start: 20051120
  46. PERCOCET [Concomitant]
     Indication: ANALGESIC INTERVENTION SUPPORTIVE THERAPY
     Dates: start: 20051123
  47. MAGNESIUM SULFATE [Concomitant]
     Indication: HYPOMAGNESAEMIA
     Route: 042
     Dates: start: 20051123
  48. TYLENOL [Concomitant]
     Indication: ANALGESIC INTERVENTION SUPPORTIVE THERAPY
     Dates: start: 20051123

REACTIONS (4)
  - CARDIAC FAILURE CONGESTIVE [None]
  - GASTROINTESTINAL HAEMORRHAGE [None]
  - HYPONATRAEMIA [None]
  - RESPIRATORY FAILURE [None]
